FAERS Safety Report 9018148 (Version 1)
Quarter: 2013Q1

REPORT INFORMATION
  Report Type: Spontaneous
  Country: US (occurrence: None)
  Receive Date: 20130111
  Receipt Date: 20130111
  Transmission Date: 20140127
  Serious: No
  Sender: FDA-Public Use
  Company Number: None

PATIENT
  Age: 53 Year
  Sex: Female
  Weight: 49.9 kg

DRUGS (2)
  1. PANTOPRAZOLE [Suspect]
     Indication: SENSATION OF FOREIGN BODY
     Route: 048
     Dates: start: 20121110, end: 20121128
  2. PANTOPRAZOLE [Suspect]
     Indication: REFLUX LARYNGITIS
     Route: 048
     Dates: start: 20121110, end: 20121128

REACTIONS (4)
  - Drug ineffective [None]
  - Laryngeal inflammation [None]
  - Condition aggravated [None]
  - Product substitution issue [None]
